FAERS Safety Report 18682462 (Version 1)
Quarter: 2020Q4

REPORT INFORMATION
  Report Type: Report from Study
  Country: IE (occurrence: IE)
  Receive Date: 20201230
  Receipt Date: 20201230
  Transmission Date: 20210114
  Serious: Yes (Hospitalization)
  Sender: FDA-Public Use
  Company Number: IE-ASTRAZENECA-2020SF72415

PATIENT
  Age: 22661 Day
  Sex: Female
  Weight: 78 kg

DRUGS (1)
  1. DURVALUMAB. [Suspect]
     Active Substance: DURVALUMAB
     Indication: SMALL CELL LUNG CANCER EXTENSIVE STAGE
     Route: 042

REACTIONS (4)
  - Lower respiratory tract infection [Unknown]
  - Pyrexia [Recovered/Resolved]
  - Impaired work ability [Unknown]
  - Fatigue [Unknown]

NARRATIVE: CASE EVENT DATE: 20201216
